FAERS Safety Report 7255431-1 (Version None)
Quarter: 2011Q1

REPORT INFORMATION
  Report Type: 
  Country: None (occurrence: None)
  Receive Date: 20110129
  Receipt Date: 20100406
  Transmission Date: 20110831
  Serious: No
  Sender: FDA-Public Use
  Company Number: US-ABBOTT-10P-163-0638123-00

PATIENT
  Sex: Female
  Weight: 63.56 kg

DRUGS (15)
  1. HUMIRA [Suspect]
     Dates: start: 20100101, end: 20100101
  2. LOMOTIL [Concomitant]
     Indication: DIARRHOEA
  3. IMURAN [Concomitant]
     Indication: ANORECTAL DISORDER
  4. DEMEROL [Concomitant]
     Indication: PAIN
  5. LOMOTIL [Concomitant]
     Indication: CROHN'S DISEASE
     Route: 048
  6. VITAMIN TAB [Concomitant]
     Indication: VITAMIN SUPPLEMENTATION
  7. HUMIRA [Suspect]
     Dates: start: 20100101
  8. COLESTID [Concomitant]
     Indication: DIARRHOEA
  9. DEMEROL [Concomitant]
     Indication: CROHN'S DISEASE
     Route: 048
  10. MAGNESIUM OXIDE [Concomitant]
     Indication: MINERAL SUPPLEMENTATION
  11. TEGRETOL [Concomitant]
     Indication: EPILEPSY
     Dosage: 200MG IN AM AND 300MG IN PM
  12. COLESTID [Concomitant]
     Indication: CROHN'S DISEASE
  13. SYNTHROID [Concomitant]
     Indication: HYPOTHYROIDISM
     Route: 048
  14. CALCIUM [Concomitant]
     Indication: MINERAL SUPPLEMENTATION
  15. HUMIRA [Suspect]
     Indication: CROHN'S DISEASE
     Dates: start: 20100101, end: 20100101

REACTIONS (3)
  - TINEA INFECTION [None]
  - MIGRAINE [None]
  - RECTAL ABSCESS [None]
